FAERS Safety Report 4961162-0 (Version None)
Quarter: 2006Q1

REPORT INFORMATION
  Report Type: 
  Country: None (occurrence: None)
  Receive Date: 20060201
  Receipt Date: 20051020
  Transmission Date: 20060701
  Serious: No
  Sender: FDA-Public Use
  Company Number: 2005PV003781

PATIENT
  Age: 64 Year
  Sex: Female
  Weight: 99.3377 kg

DRUGS (4)
  1. BYETTA [Suspect]
     Indication: DIABETES MELLITUS NON-INSULIN-DEPENDENT
     Dosage: 5 MCG;TID;SC   : 5 MCG;BID;SC
     Route: 058
     Dates: start: 20050930, end: 20051001
  2. BYETTA [Suspect]
     Indication: DIABETES MELLITUS NON-INSULIN-DEPENDENT
     Dosage: 5 MCG;TID;SC   : 5 MCG;BID;SC
     Route: 058
     Dates: start: 20051002
  3. GLYBURIDE [Concomitant]
  4. METFORMIN [Concomitant]

REACTIONS (8)
  - BLOOD GLUCOSE DECREASED [None]
  - FEELING ABNORMAL [None]
  - HYPOGLYCAEMIA [None]
  - INCORRECT DOSE ADMINISTERED [None]
  - INJECTION SITE BRUISING [None]
  - INJECTION SITE HAEMORRHAGE [None]
  - INJECTION SITE PAIN [None]
  - MEDICATION ERROR [None]
